FAERS Safety Report 9090536 (Version 1)
Quarter: 2013Q1

REPORT INFORMATION
  Report Type: Spontaneous
  Country: US (occurrence: US)
  Receive Date: 20130130
  Receipt Date: 20130130
  Transmission Date: 20140127
  Serious: No
  Sender: FDA-Public Use
  Company Number: US-ABBOTT-12P-163-0978791-00

PATIENT
  Age: 68 Year
  Sex: Male
  Weight: 79.45 kg

DRUGS (4)
  1. HUMIRA [Suspect]
     Indication: CROHN^S DISEASE
     Dates: start: 20120801
  2. BENICAR [Concomitant]
     Indication: HYPERTENSION
  3. ALLEGRA [Concomitant]
     Indication: HYPERSENSITIVITY
  4. IMODIUM [Concomitant]
     Indication: DIARRHOEA

REACTIONS (2)
  - Sinusitis [Not Recovered/Not Resolved]
  - Oropharyngeal pain [Recovered/Resolved]
